FAERS Safety Report 21144195 (Version 1)
Quarter: 2022Q3

REPORT INFORMATION
  Report Type: Spontaneous
  Country: IT (occurrence: IT)
  Receive Date: 20220728
  Receipt Date: 20220728
  Transmission Date: 20221027
  Serious: Yes (Hospitalization, Other)
  Sender: FDA-Public Use
  Company Number: IT-BAXTER-2022BAX015656

PATIENT
  Age: 89 Year
  Sex: Male

DRUGS (11)
  1. FUROSEMIDE [Suspect]
     Active Substance: FUROSEMIDE
     Dosage: 5375 MG (MILLIGRAMS)
     Route: 065
     Dates: start: 20220621, end: 20220621
  2. SILODOSIN [Suspect]
     Active Substance: SILODOSIN
     Dosage: 160 MG (MILLIGRAMS)
     Route: 048
     Dates: start: 20220621, end: 20220621
  3. FERROUS SULFATE [Suspect]
     Active Substance: FERROUS SULFATE
     Dosage: 2100 MG (MILLIGRAMS)
     Route: 065
     Dates: start: 20220621, end: 20220621
  4. TRAZODONE HYDROCHLORIDE [Suspect]
     Active Substance: TRAZODONE HYDROCHLORIDE
     Dosage: UNK
     Route: 048
     Dates: start: 20220621, end: 20220621
  5. ACETAMINOPHEN\CODEINE PHOSPHATE [Suspect]
     Active Substance: ACETAMINOPHEN\CODEINE PHOSPHATE
     Dosage: 15 (DF) DOSAGE FORM
     Route: 048
     Dates: start: 20220621, end: 20220621
  6. ALLOPURINOL [Suspect]
     Active Substance: ALLOPURINOL
     Dosage: 6000 MG (MILLIGRAMS)
     Route: 048
     Dates: start: 20220621, end: 20220621
  7. SERTRALINE HYDROCHLORIDE [Suspect]
     Active Substance: SERTRALINE HYDROCHLORIDE
     Dosage: 750 MG (MILLIGRAMS)
     Route: 048
     Dates: start: 20220621, end: 20220621
  8. Vitamina d [Concomitant]
     Dosage: 25 (DRP) (DROP (1/12 MILLILITRE))
     Route: 065
  9. SILODOSIN [Concomitant]
     Active Substance: SILODOSIN
     Dosage: 8 MG (MILLIGRAMS)
     Route: 065
  10. PREGABALIN [Concomitant]
     Active Substance: PREGABALIN
     Dosage: 50 MG (MILLIGRAMS)
     Route: 065
  11. COUMADIN [Concomitant]
     Active Substance: WARFARIN SODIUM
     Dosage: 5 MG (MILLIGRAMS)
     Route: 065

REACTIONS (3)
  - Coma [Not Recovered/Not Resolved]
  - Sopor [Not Recovered/Not Resolved]
  - Drug abuse [Not Recovered/Not Resolved]

NARRATIVE: CASE EVENT DATE: 20220621
